FAERS Safety Report 23587291 (Version 3)
Quarter: 2024Q2

REPORT INFORMATION
  Report Type: Spontaneous
  Country: AU (occurrence: AU)
  Receive Date: 20240301
  Receipt Date: 20240513
  Transmission Date: 20240716
  Serious: Yes (Hospitalization, Other)
  Sender: FDA-Public Use
  Company Number: AU-ELI_LILLY_AND_COMPANY-AU202305013852

PATIENT
  Age: 20 Year
  Sex: Male

DRUGS (1)
  1. STRATTERA [Suspect]
     Active Substance: ATOMOXETINE HYDROCHLORIDE
     Indication: Attention deficit hyperactivity disorder
     Dosage: 40 MG, UNKNOWN
     Route: 065
     Dates: start: 2021

REACTIONS (19)
  - Brain injury [Unknown]
  - Schizophrenia [Unknown]
  - Psychotic disorder [Unknown]
  - Communication disorder [Unknown]
  - Abnormal behaviour [Unknown]
  - Amnesia [Unknown]
  - Social avoidant behaviour [Unknown]
  - Withdrawal syndrome [Unknown]
  - Feeling abnormal [Unknown]
  - Apathy [Unknown]
  - Photophobia [Unknown]
  - Hyperacusis [Unknown]
  - Paranoia [Unknown]
  - Catatonia [Unknown]
  - Product dose omission issue [Unknown]
  - Insomnia [Unknown]
  - Dizziness [Unknown]
  - Palpitations [Unknown]
  - Weight decreased [Unknown]
